FAERS Safety Report 4614869-9 (Version None)
Quarter: 2005Q1

REPORT INFORMATION
  Report Type: 
  Country: None (occurrence: None)
  Receive Date: 20050318
  Receipt Date: 20050318
  Transmission Date: 20050727
  Serious: Yes (Other)
  Sender: FDA-Public Use
  Company Number: None

PATIENT
  Age: 34 Year
  Sex: Male
  Weight: 90.7194 kg

DRUGS (2)
  1. ROBITUSSIN-CF   2 TEASPOONS   WYETH [Suspect]
     Indication: COUGH
     Dosage: 2 TEASPOONS   ONCE   ORAL
     Route: 048
     Dates: start: 20050316, end: 20050318
  2. IBUPROFEN [Concomitant]

REACTIONS (1)
  - GRAND MAL CONVULSION [None]
